FAERS Safety Report 14505105 (Version 4)
Quarter: 2020Q3

REPORT INFORMATION
  Report Type: Report from Study
  Country: DE (occurrence: DE)
  Receive Date: 20180208
  Receipt Date: 20180613
  Transmission Date: 20201104
  Serious: Yes (Other)
  Sender: FDA-Public Use
  Company Number: DE-ROCHE-2062887

PATIENT
  Age: 68 Year
  Sex: Male
  Weight: 78 kg

DRUGS (103)
  1. PENTACARINAT [Concomitant]
     Active Substance: PENTAMIDINE ISETHIONATE
     Indication: PROPHYLAXIS
     Dosage: BACT. PROPHYLAXIS
     Route: 065
     Dates: start: 20170920
  2. BEROTEC [Concomitant]
     Active Substance: FENOTEROL HYDROBROMIDE
     Indication: PROPHYLAXIS
     Dosage: BACT. PROPHYLAXIS
     Route: 065
     Dates: start: 20170920
  3. BETNESOL (GERMANY) [Concomitant]
     Route: 065
     Dates: start: 20171103
  4. ACICLOVIR [Concomitant]
     Active Substance: ACYCLOVIR
     Indication: PROPHYLAXIS
     Dosage: VIRALE PROPHYLAXIS
     Route: 065
     Dates: start: 20171107, end: 20180509
  5. PREDNISOLON [Concomitant]
     Active Substance: PREDNISOLONE
     Route: 065
     Dates: start: 20180303, end: 20180308
  6. PREDNISOLON [Concomitant]
     Active Substance: PREDNISOLONE
     Route: 065
     Dates: start: 20180224, end: 20180302
  7. PREDNISOLON [Concomitant]
     Active Substance: PREDNISOLONE
     Route: 065
     Dates: start: 20180316, end: 20180322
  8. AMOCLAV [Concomitant]
     Active Substance: AMOXICILLIN\CLAVULANATE POTASSIUM
     Dosage: 875/125MG
     Route: 065
     Dates: start: 20171221, end: 20171227
  9. NOVAMIN (AMIKACIN SULFATE) [Concomitant]
     Active Substance: AMIKACIN SULFATE
     Dosage: 4X20DROPS
     Route: 065
     Dates: start: 20171227, end: 20171230
  10. NEUPOGEN [Concomitant]
     Active Substance: FILGRASTIM
     Dosage: 30MIO.E
     Route: 065
     Dates: start: 20171227, end: 20171228
  11. NEUPOGEN [Concomitant]
     Active Substance: FILGRASTIM
     Dosage: 30 MIO.E S.C.
     Route: 065
     Dates: start: 20180212, end: 20180214
  12. PLATELETS [Concomitant]
     Active Substance: HUMAN PLATELET, ALLOGENIC
     Route: 065
     Dates: start: 20180122, end: 20180122
  13. DAIVOBET [Concomitant]
     Active Substance: BETAMETHASONE DIPROPIONATE\CALCIPOTRIENE
     Route: 065
     Dates: start: 20180127
  14. TOREM [Concomitant]
     Active Substance: TORSEMIDE
     Indication: RENAL FAILURE
     Route: 065
     Dates: start: 20180201, end: 20180206
  15. CLINDAMYCIN. [Concomitant]
     Active Substance: CLINDAMYCIN
     Route: 042
     Dates: start: 20180212, end: 20180221
  16. PREDNISOLON [Concomitant]
     Active Substance: PREDNISOLONE
     Route: 065
     Dates: start: 20171225, end: 20171231
  17. PREDNISOLON [Concomitant]
     Active Substance: PREDNISOLONE
     Route: 065
     Dates: start: 20180323, end: 20180329
  18. INFLIXIMAB [Concomitant]
     Active Substance: INFLIXIMAB
     Route: 042
     Dates: start: 20180221, end: 20180221
  19. PERFALGAN [Concomitant]
     Active Substance: ACETAMINOPHEN
     Route: 042
     Dates: start: 20180118
  20. PLATELETS [Concomitant]
     Active Substance: HUMAN PLATELET, ALLOGENIC
     Route: 042
     Dates: start: 20180201, end: 20180201
  21. PROGRAF [Concomitant]
     Active Substance: TACROLIMUS
     Route: 065
     Dates: start: 20180126
  22. SMOFKABIVEN PERIPHERAL [Concomitant]
     Route: 065
     Dates: start: 20180214, end: 20180324
  23. MERONEM [Concomitant]
     Active Substance: MEROPENEM
     Route: 042
     Dates: start: 20180320
  24. EXCIPIAL U LIPOLOTION [Concomitant]
     Indication: DERMATITIS
     Route: 065
     Dates: start: 20171030
  25. PREDNITOP (GERMANY) [Concomitant]
     Route: 065
     Dates: start: 20171102, end: 20180119
  26. CETIRIZIN [Concomitant]
     Active Substance: CETIRIZINE HYDROCHLORIDE
     Route: 065
     Dates: start: 20171107
  27. PREDNISOLON [Concomitant]
     Active Substance: PREDNISOLONE
     Route: 065
     Dates: start: 20171218, end: 20171224
  28. SOBELIN (GERMANY) [Concomitant]
     Route: 065
     Dates: start: 20180211, end: 20180212
  29. NACL .9% [Concomitant]
     Route: 065
     Dates: start: 20180130
  30. INFLIXIMAB [Concomitant]
     Active Substance: INFLIXIMAB
     Route: 042
     Dates: start: 20180103, end: 20180103
  31. LAXANS (BISACODYL) [Concomitant]
     Active Substance: BISACODYL
     Route: 065
     Dates: start: 20180128, end: 20180128
  32. INSUMAN COMB [Concomitant]
     Active Substance: INSULIN HUMAN
     Route: 058
     Dates: start: 20180207, end: 20180213
  33. CLINDAMYCIN. [Concomitant]
     Active Substance: CLINDAMYCIN
     Route: 042
     Dates: start: 20180211, end: 20180212
  34. OPTIVE [Concomitant]
     Active Substance: CARBOXYMETHYLCELLULOSE SODIUM\GLYCERIN
     Route: 065
     Dates: start: 20171107
  35. CLEXANE [Concomitant]
     Active Substance: ENOXAPARIN SODIUM
     Route: 065
     Dates: start: 20171221, end: 20171226
  36. FLUCONAZOL [Concomitant]
     Active Substance: FLUCONAZOLE
     Route: 065
     Dates: start: 20171221, end: 20171225
  37. TAZOBAC [Concomitant]
     Active Substance: PIPERACILLIN SODIUM\TAZOBACTAM SODIUM
     Dosage: 3X4.5G
     Route: 065
     Dates: start: 20171227, end: 20180102
  38. TAZOBAC [Concomitant]
     Active Substance: PIPERACILLIN SODIUM\TAZOBACTAM SODIUM
     Dosage: 3X4.5G I.V.
     Route: 065
     Dates: start: 20180117, end: 20180208
  39. AMOXICILLIN. [Concomitant]
     Active Substance: AMOXICILLIN
     Dosage: 875/125MG
     Route: 065
     Dates: start: 20180102, end: 20180115
  40. NACL .9% [Concomitant]
     Dosage: RINSE SOLUTION
     Route: 065
     Dates: start: 20180117, end: 20180122
  41. INFLIXIMAB [Concomitant]
     Active Substance: INFLIXIMAB
     Route: 042
     Dates: start: 20180508, end: 20180508
  42. DEXAPOS [Concomitant]
     Dosage: COMOD
     Route: 065
     Dates: start: 20180119
  43. STEROFUNDIN [Concomitant]
     Active Substance: CALCIUM CHLORIDE\MAGNESIUM CHLORIDE\POTASSIUM CHLORIDE\SODIUM ACETATE\SODIUM CHLORIDE
     Dosage: HYDRATION
     Route: 065
     Dates: start: 20180119, end: 20180121
  44. PLATELETS [Concomitant]
     Active Substance: HUMAN PLATELET, ALLOGENIC
     Route: 065
     Dates: start: 20180124, end: 20180124
  45. PLATELETS [Concomitant]
     Active Substance: HUMAN PLATELET, ALLOGENIC
     Route: 065
     Dates: start: 20180130, end: 20180130
  46. PLATELETS [Concomitant]
     Active Substance: HUMAN PLATELET, ALLOGENIC
     Route: 065
     Dates: start: 20180213, end: 20180213
  47. SMOFKABIVEN PERIPHERAL [Concomitant]
     Route: 065
     Dates: start: 20180207, end: 20180213
  48. KCL [Concomitant]
     Active Substance: POTASSIUM CHLORIDE
     Route: 042
     Dates: start: 20180206
  49. ATEZOLIZUMAB. [Suspect]
     Active Substance: ATEZOLIZUMAB
     Indication: B-CELL LYMPHOMA
     Dosage: MOST RECENT DOSE (1200 MG , ONCE PER 3 WEEKS): 18/OCT/2017
     Route: 042
     Dates: start: 20170906, end: 20171018
  50. BEPANTHEN EYE OINTMENT (GERMANY) [Concomitant]
     Route: 065
     Dates: start: 20171107, end: 20180124
  51. TOREM [Concomitant]
     Active Substance: TORSEMIDE
     Indication: RENAL FAILURE
     Route: 065
     Dates: start: 20171130, end: 20180119
  52. EFFLUMIDEX [Concomitant]
     Route: 065
     Dates: start: 20171211, end: 20180119
  53. PREDNISOLON [Concomitant]
     Active Substance: PREDNISOLONE
     Route: 065
     Dates: start: 20180115, end: 20180121
  54. PREDNISOLON [Concomitant]
     Active Substance: PREDNISOLONE
     Route: 065
     Dates: start: 20180217, end: 20180223
  55. PREDNISOLON [Concomitant]
     Active Substance: PREDNISOLONE
     Route: 065
     Dates: start: 20180330, end: 20180410
  56. CLEXANE [Concomitant]
     Active Substance: ENOXAPARIN SODIUM
     Route: 065
     Dates: start: 20171227, end: 20180126
  57. INFLIXIMAB [Concomitant]
     Active Substance: INFLIXIMAB
     Route: 042
     Dates: start: 20180410, end: 20180410
  58. SMOFKABIVEN PERIPHERAL [Concomitant]
     Route: 065
     Dates: start: 20180207, end: 20180207
  59. ACTRAPID [Concomitant]
     Active Substance: INSULIN HUMAN
     Route: 058
     Dates: start: 20180205
  60. MERONEM [Concomitant]
     Active Substance: MEROPENEM
     Route: 042
     Dates: start: 20180213, end: 20180226
  61. OBINUTUZUMAB. [Suspect]
     Active Substance: OBINUTUZUMAB
     Indication: B-CELL LYMPHOMA
     Dosage: ON DAYS 1, 8, AND 15 OF CYCLE 1, AND ON DAY 1 OF CYCLES 2?6, GIVEN IN 21?DAY CYCLES DURING INDUCTION
     Route: 042
     Dates: start: 20170816, end: 20171108
  62. CLOBETASOLPROPIONAT [Concomitant]
     Route: 065
     Dates: start: 20171201, end: 20180103
  63. HYLO?COMOD [Concomitant]
     Active Substance: HYALURONATE SODIUM
     Route: 065
     Dates: start: 20171211
  64. PREDNISOLON [Concomitant]
     Active Substance: PREDNISOLONE
     Dosage: 1?0?1
     Route: 065
     Dates: start: 20180101, end: 20180103
  65. PREDNISOLON [Concomitant]
     Active Substance: PREDNISOLONE
     Route: 065
     Dates: start: 20180104, end: 20180114
  66. PREDNISOLON [Concomitant]
     Active Substance: PREDNISOLONE
     Route: 065
     Dates: start: 20180126, end: 20180203
  67. FLUCONAZOL [Concomitant]
     Active Substance: FLUCONAZOLE
     Route: 065
     Dates: start: 20171228, end: 20180110
  68. PALLADON [Concomitant]
     Active Substance: HYDROMORPHONE
     Dosage: RETARD
     Route: 065
     Dates: start: 20171227, end: 20180103
  69. INFLIXIMAB [Concomitant]
     Active Substance: INFLIXIMAB
     Route: 042
     Dates: start: 20180424, end: 20180424
  70. KIOVIG [Concomitant]
     Active Substance: HUMAN IMMUNOGLOBULIN G
     Indication: BLOOD IMMUNOGLOBULIN G DECREASED
     Route: 042
     Dates: start: 20180119, end: 20180119
  71. FLOXAL [Concomitant]
     Active Substance: OFLOXACIN
     Route: 065
     Dates: start: 20180128
  72. KALIUMCHLORID [Concomitant]
     Active Substance: POTASSIUM CHLORIDE
     Dosage: 60MVAL
     Route: 042
     Dates: start: 20180124, end: 20180128
  73. DEXA (GERMANY) [Concomitant]
     Route: 065
     Dates: start: 20180131
  74. SMOFKABIVEN PERIPHERAL [Concomitant]
     Route: 042
     Dates: start: 20180205, end: 20180206
  75. MERONEM [Concomitant]
     Active Substance: MEROPENEM
     Route: 042
     Dates: start: 20180303, end: 20180316
  76. BEPANTHEN (DEXPANTHENOL) [Concomitant]
     Active Substance: DEXPANTHENOL
     Dosage: MOUTH RINSE
     Route: 065
     Dates: start: 20171103
  77. VIGANTOLETTEN [Concomitant]
     Active Substance: CHOLECALCIFEROL
     Dosage: 1000
     Route: 065
     Dates: start: 20171107
  78. PREDNISOLON [Concomitant]
     Active Substance: PREDNISOLONE
     Route: 065
     Dates: start: 20180204, end: 20180209
  79. PREDNISOLON [Concomitant]
     Active Substance: PREDNISOLONE
     Route: 065
     Dates: start: 20180210, end: 20180216
  80. SOBELIN (GERMANY) [Concomitant]
     Route: 042
     Dates: start: 20180212, end: 20180221
  81. NEUPOGEN [Concomitant]
     Active Substance: FILGRASTIM
     Dosage: 30MIO.E
     Route: 065
     Dates: start: 20180122, end: 20180131
  82. NEUPOGEN [Concomitant]
     Active Substance: FILGRASTIM
     Dosage: 30 MIO.E S.C.
     Route: 065
     Dates: start: 20180205, end: 20180205
  83. NACL .9% [Concomitant]
     Dosage: RINSE SOLUTION
     Route: 065
     Dates: start: 20171228, end: 20180103
  84. NACL .9% [Concomitant]
     Dosage: NOSE SPRAY
     Route: 065
     Dates: start: 20180227
  85. INFLIXIMAB [Concomitant]
     Active Substance: INFLIXIMAB
     Route: 042
     Dates: start: 20180130, end: 20180130
  86. CANDIO HERMAL [Concomitant]
     Route: 065
     Dates: start: 20180119, end: 20180206
  87. LAXANS (BISACODYL) [Concomitant]
     Active Substance: BISACODYL
     Route: 065
     Dates: start: 20180123, end: 20180123
  88. POLATUZUMAB VEDOTIN. [Suspect]
     Active Substance: POLATUZUMAB VEDOTIN
     Indication: B-CELL LYMPHOMA
     Dosage: 1.4 MG/KILOGRAM (KG) OR 1.8 MG/KG (DOSE?ESCALATION PHASE) AND AT RP2D (DOSE?EXPANSION PHASE) ON DAY
     Route: 042
     Dates: start: 20170816, end: 20171108
  89. PANTOZOL [Concomitant]
     Active Substance: PANTOPRAZOLE SODIUM
     Indication: PROPHYLAXIS
     Route: 065
     Dates: start: 20171018
  90. GLANDOMED [Concomitant]
     Route: 065
     Dates: start: 20171031
  91. AMPHO MORONAL [Concomitant]
     Active Substance: AMPHOTERICIN B
     Indication: PROPHYLAXIS
     Dosage: CANDIDA MUCOSA PROPHYLAXIS
     Route: 065
     Dates: start: 20171202, end: 20180125
  92. PREDNISOLON [Concomitant]
     Active Substance: PREDNISOLONE
     Route: 065
     Dates: start: 20180122, end: 20180122
  93. PREDNISOLON [Concomitant]
     Active Substance: PREDNISOLONE
     Route: 065
     Dates: start: 20180123, end: 20180125
  94. PREDNISOLON [Concomitant]
     Active Substance: PREDNISOLONE
     Route: 065
     Dates: start: 20180309, end: 20180315
  95. PREDNISOLON [Concomitant]
     Active Substance: PREDNISOLONE
     Route: 065
     Dates: start: 20180411, end: 20180430
  96. SOBELIN (GERMANY) [Concomitant]
     Dosage: 3X600MG
     Route: 065
     Dates: start: 20171221, end: 20171227
  97. OCTENISEPT (OCTENIDINE HYDROCHLORIDE) [Concomitant]
     Dosage: WOUND ENVELOPES
     Route: 065
     Dates: start: 20171227, end: 20180103
  98. INFLIXIMAB [Concomitant]
     Active Substance: INFLIXIMAB
     Route: 042
     Dates: start: 20180312
  99. INFLIXIMAB [Concomitant]
     Active Substance: INFLIXIMAB
     Route: 042
     Dates: start: 20180327, end: 20180327
  100. STEROFUNDIN [Concomitant]
     Active Substance: CALCIUM CHLORIDE\MAGNESIUM CHLORIDE\POTASSIUM CHLORIDE\SODIUM ACETATE\SODIUM CHLORIDE
     Dosage: HYDRATION
     Route: 065
     Dates: start: 20180122, end: 20180412
  101. BIFITERAL [Concomitant]
     Active Substance: LACTULOSE
     Route: 065
     Dates: start: 20180128, end: 20180128
  102. LASIX [Concomitant]
     Active Substance: FUROSEMIDE
     Route: 065
     Dates: start: 20180128
  103. DAIVONEX [Concomitant]
     Active Substance: CALCIPOTRIENE
     Route: 065
     Dates: start: 20180127

REACTIONS (1)
  - Bronchopulmonary aspergillosis [Recovered/Resolved]

NARRATIVE: CASE EVENT DATE: 20180122
